FAERS Safety Report 8693752 (Version 2)
Quarter: 2012Q4

REPORT INFORMATION
  Report Type: Report from Study
  Country: GR (occurrence: GR)
  Receive Date: 20120731
  Receipt Date: 20120925
  Transmission Date: 20130627
  Serious: Yes (Life-Threatening)
  Sender: FDA-Public Use
  Company Number: GR-CELGENEUS-066-C5013-12072455

PATIENT
  Age: 79 Year
  Sex: Female
  Weight: 68 kg

DRUGS (7)
  1. CC-5013 [Suspect]
     Indication: MULTIPLE MYELOMA
     Route: 048
     Dates: start: 20080722, end: 20100804
  2. CC-5013 [Suspect]
     Route: 048
  3. MELPHALAN [Suspect]
     Indication: MULTIPLE MYELOMA
     Route: 065
     Dates: start: 20080722, end: 20090724
  4. PREDNISONE [Suspect]
     Indication: MULTIPLE MYELOMA
     Route: 065
     Dates: start: 20080722, end: 20090724
  5. ERYTHROPOETIN [Concomitant]
     Indication: ANEMIA
     Dosage: 5714.2857 IU (International Unit)
     Route: 058
     Dates: start: 20120117
  6. G-CSF [Concomitant]
     Indication: LEUKOPENIA
     Route: 058
     Dates: start: 20120117
  7. RED BLOOD CELLS [Concomitant]
     Indication: ANEMIA
     Route: 041
     Dates: start: 20120117

REACTIONS (1)
  - Myelodysplastic syndrome [Not Recovered/Not Resolved]
